FAERS Safety Report 6209594-7 (Version None)
Quarter: 2009Q2

REPORT INFORMATION
  Report Type: 
  Country: None (occurrence: None)
  Receive Date: 20090601
  Receipt Date: 20090528
  Transmission Date: 20091009
  Serious: Yes (Hospitalization, Other)
  Sender: FDA-Public Use
  Company Number: ES-BRISTOL-MYERS SQUIBB COMPANY-14639785

PATIENT
  Age: 44 Year
  Sex: Male

DRUGS (1)
  1. VIDEX [Suspect]
     Indication: HIV INFECTION
     Dosage: VIDEX 250 MG GASTRO-RESISTANT CAPSULES, 30 CAPSULES
     Route: 048
     Dates: start: 20031016, end: 20081023

REACTIONS (1)
  - ASCITES [None]
